FAERS Safety Report 26085690 (Version 1)
Quarter: 2025Q4

REPORT INFORMATION
  Report Type: Spontaneous
  Country: US (occurrence: US)
  Receive Date: 20251125
  Receipt Date: 20251125
  Transmission Date: 20260118
  Serious: Yes (Other)
  Sender: ACCORD
  Company Number: US-MLMSERVICE-20180305-1093318-1

PATIENT
  Age: 44 Year
  Sex: Male

DRUGS (3)
  1. MYCOPHENOLATE MOFETIL [Suspect]
     Active Substance: MYCOPHENOLATE MOFETIL
     Indication: Product used for unknown indication
  2. BASILIXIMAB [Suspect]
     Active Substance: BASILIXIMAB
     Indication: Product used for unknown indication
  3. EPINEPHRINE [Concomitant]
     Active Substance: EPINEPHRINE
     Indication: Cardiac failure

REACTIONS (1)
  - Renal impairment [Unknown]
